FAERS Safety Report 7806429-3 (Version None)
Quarter: 2011Q4

REPORT INFORMATION
  Report Type: 
  Country: None (occurrence: None)
  Receive Date: 20111011
  Receipt Date: 20111003
  Transmission Date: 20120403
  Serious: Yes (Hospitalization, Other)
  Sender: FDA-Public Use
  Company Number: US-JNJFOC-20110602853

PATIENT
  Sex: Male

DRUGS (6)
  1. FENTANYL [Suspect]
     Indication: PAIN
     Route: 062
     Dates: start: 20090529
  2. ROXICET [Concomitant]
     Indication: PAIN
     Route: 065
     Dates: start: 20090529
  3. ROXICET [Concomitant]
     Indication: NAUSEA
     Route: 065
     Dates: start: 20090529
  4. PROMETHAZINE [Concomitant]
     Indication: PAIN
     Route: 065
     Dates: start: 20090529
  5. MORPHINE [Concomitant]
     Indication: PAIN
     Route: 065
     Dates: start: 20090529
  6. PROMETHAZINE [Concomitant]
     Indication: NAUSEA
     Route: 065
     Dates: start: 20090529

REACTIONS (9)
  - OVERDOSE [None]
  - AMNESIA [None]
  - CARDIAC ARREST [None]
  - RENAL FAILURE ACUTE [None]
  - UNRESPONSIVE TO STIMULI [None]
  - RESPIRATORY FAILURE [None]
  - SHOCK [None]
  - OFF LABEL USE [None]
  - NERVOUS SYSTEM DISORDER [None]
